FAERS Safety Report 5501126-1 (Version None)
Quarter: 2007Q4

REPORT INFORMATION
  Report Type: 
  Country: None (occurrence: None)
  Receive Date: 20071029
  Receipt Date: 20071018
  Transmission Date: 20080405
  Serious: Yes (Hospitalization)
  Sender: FDA-Public Use
  Company Number: US-PFIZER INC-2007080685

PATIENT
  Sex: Female
  Weight: 63.8 kg

DRUGS (12)
  1. SUTENT [Suspect]
     Indication: MUELLER'S MIXED TUMOUR
     Route: 048
     Dates: start: 20070725, end: 20070814
  2. SUTENT [Suspect]
     Route: 048
  3. ALDACTAZIDE [Concomitant]
     Dosage: TEXT:1 TAB
     Route: 048
  4. ATIVAN [Concomitant]
     Route: 048
  5. CELEXA [Concomitant]
     Route: 048
  6. FOLIC ACID [Concomitant]
     Route: 048
  7. LIPITOR [Concomitant]
     Route: 048
  8. METFORMIN HCL [Concomitant]
     Route: 048
  9. VITAMIN CAP [Concomitant]
     Dosage: TEXT:1 TAB
     Route: 048
  10. PREDNISONE [Concomitant]
     Route: 048
  11. ZOFRAN [Concomitant]
     Route: 048
  12. PYRIDOXINE HYDROCHLORIDE [Concomitant]
     Route: 048
     Dates: start: 20070102

REACTIONS (1)
  - INTESTINAL FISTULA [None]
